FAERS Safety Report 7580358-5 (Version None)
Quarter: 2011Q2

REPORT INFORMATION
  Report Type: 
  Country: None (occurrence: None)
  Receive Date: 20110629
  Receipt Date: 20110616
  Transmission Date: 20111010
  Serious: Yes (Other)
  Sender: FDA-Public Use
  Company Number: GB-JNJFOC-20110505330

PATIENT
  Age: 40 Year
  Sex: Male

DRUGS (3)
  1. REMICADE [Suspect]
     Indication: CROHN'S DISEASE
     Dosage: ONE DOSE ONLY
     Route: 042
     Dates: start: 20100701, end: 20100701
  2. HUMIRA [Suspect]
     Indication: CROHN'S DISEASE
     Dates: start: 20100701
  3. AZATHIOPRINE [Suspect]
     Indication: CROHN'S DISEASE
     Dosage: HAD DRUG FOR 4 YEARS

REACTIONS (2)
  - NODULAR REGENERATIVE HYPERPLASIA [None]
  - LIVER INJURY [None]
